FAERS Safety Report 16956216 (Version 1)
Quarter: 2019Q4

REPORT INFORMATION
  Report Type: Spontaneous
  Country: SE (occurrence: SE)
  Receive Date: 20191024
  Receipt Date: 20191024
  Transmission Date: 20200122
  Serious: Yes (Hospitalization)
  Sender: FDA-Public Use
  Company Number: SE-MICRO LABS LIMITED-ML2019-02813

PATIENT
  Age: 79 Year
  Sex: Female

DRUGS (15)
  1. OPARAP 500 MG FILMDRAGERAD TABLETT [Concomitant]
     Dosage: VB
     Dates: start: 20180124
  2. METOPROLOL. [Concomitant]
     Active Substance: METOPROLOL
  3. FURIX 40 MG TABLETT [Concomitant]
     Dates: start: 20190729
  4. TROMBYL 75 MG TABLETT [Concomitant]
     Active Substance: ASPIRIN
     Dates: start: 20180125
  5. ATROVENT [Concomitant]
     Active Substance: IPRATROPIUM BROMIDE
     Dosage: VB
     Dates: start: 20190728
  6. SIMVASTATIN. [Suspect]
     Active Substance: SIMVASTATIN
     Dates: end: 201908
  7. BRALTUS 10 MIKROGRAM/DOS INHALATIONSPULVER, H?RD KAPSEL [Concomitant]
     Dates: start: 20190620
  8. CLOPIDOGREL [Concomitant]
     Active Substance: CLOPIDOGREL BISULFATE
     Dates: start: 20190806
  9. BUVENTOL EASYHALER 200 MIKROGRAM/DOS INHALATIONSPULVER [Concomitant]
     Dosage: VB
     Dates: start: 20190620
  10. ELIQUIS 2,5 MG FILMDRAGERAD TABLETT [Concomitant]
     Dates: start: 20190801
  11. GABAPENTIN 1A FARMA 100 MG KAPSEL, H?RD [Concomitant]
     Dates: start: 20190513
  12. LOCERYL 5 % MEDICINSKT NAGELLACK [Concomitant]
     Dates: start: 20180124
  13. FELODIPINE. [Concomitant]
     Active Substance: FELODIPINE
  14. PANOCOD 500 MG/30 MG TABLETT [Concomitant]
     Dosage: VB
     Dates: start: 20180124
  15. CANDESARSTAD [Concomitant]

REACTIONS (2)
  - Asthenia [Recovered/Resolved]
  - Balance disorder [Recovered/Resolved]

NARRATIVE: CASE EVENT DATE: 20190814
